FAERS Safety Report 8906819 (Version 2)
Quarter: 2013Q2

REPORT INFORMATION
  Report Type: Spontaneous
  Country: DE (occurrence: DE)
  Receive Date: 20121114
  Receipt Date: 20130410
  Transmission Date: 20140414
  Serious: Yes (Hospitalization)
  Sender: FDA-Public Use
  Company Number: DE-ELI_LILLY_AND_COMPANY-DE201211001916

PATIENT
  Age: 81 Year
  Sex: Female

DRUGS (5)
  1. FORSTEO [Suspect]
     Indication: OSTEOPOROSIS
     Dosage: UNK, QD
     Route: 058
     Dates: start: 20110621
  2. MARCUMAR [Concomitant]
  3. MTX [Concomitant]
     Dosage: UNK, EVERY WEDNESDAY
     Dates: start: 2009
  4. FOLCUR [Concomitant]
     Dosage: UNK, EVERY FRIDAY
     Dates: start: 2009
  5. MORPHINE [Concomitant]

REACTIONS (5)
  - Comminuted fracture [Not Recovered/Not Resolved]
  - Fall [Recovered/Resolved]
  - Impaired healing [Not Recovered/Not Resolved]
  - Visual acuity reduced [Not Recovered/Not Resolved]
  - Upper limb fracture [Not Recovered/Not Resolved]
